FAERS Safety Report 25776997 (Version 1)
Quarter: 2025Q3

REPORT INFORMATION
  Report Type: Spontaneous
  Country: EU (occurrence: EU)
  Receive Date: 20250909
  Receipt Date: 20250909
  Transmission Date: 20251020
  Serious: Yes (Other)
  Sender: ASTELLAS
  Company Number: EU-ASTELLAS-2025-AER-048169

PATIENT
  Age: 72 Year
  Sex: Male

DRUGS (2)
  1. PADCEV [Suspect]
     Active Substance: ENFORTUMAB VEDOTIN-EJFV
     Indication: Transitional cell carcinoma metastatic
     Route: 065
     Dates: start: 20241014
  2. PADCEV [Suspect]
     Active Substance: ENFORTUMAB VEDOTIN-EJFV
     Route: 065
     Dates: start: 20241120, end: 20250827

REACTIONS (7)
  - Loss of consciousness [Recovered/Resolved]
  - Ocular toxicity [Not Recovered/Not Resolved]
  - Blood pressure increased [Unknown]
  - Malignant neoplasm progression [Unknown]
  - Hyperglycaemia [Unknown]
  - Skin toxicity [Not Recovered/Not Resolved]
  - Off label use [Unknown]

NARRATIVE: CASE EVENT DATE: 20241120
